FAERS Safety Report 5260781-4 (Version None)
Quarter: 2007Q1

REPORT INFORMATION
  Report Type: 
  Country: None (occurrence: None)
  Receive Date: 20070309
  Receipt Date: 20070228
  Transmission Date: 20070707
  Serious: Yes (Hospitalization)
  Sender: FDA-Public Use
  Company Number: 2006UW11596

PATIENT
  Sex: Male
  Weight: 113.6 kg

DRUGS (4)
  1. SEROQUEL [Suspect]
     Route: 048
  2. ZYPREXA [Suspect]
     Dates: start: 20050101
  3. ABILIFY [Concomitant]
  4. RISPERDAL [Concomitant]

REACTIONS (2)
  - BIPOLAR I DISORDER [None]
  - DIABETES MELLITUS [None]
